FAERS Safety Report 22678793 (Version 2)
Quarter: 2024Q4

REPORT INFORMATION
  Report Type: Spontaneous
  Country: CA (occurrence: CA)
  Receive Date: 20230706
  Receipt Date: 20241217
  Transmission Date: 20250114
  Serious: Yes (Other)
  Sender: BIOMARIN
  Company Number: CA-BIOMARINAP-CA-2023-151278

PATIENT

DRUGS (1)
  1. VIMIZIM [Suspect]
     Active Substance: ELOSULFASE ALFA
     Indication: Mucopolysaccharidosis IV
     Dosage: 30 MILLIGRAM, QW
     Route: 042
     Dates: start: 20210325

REACTIONS (11)
  - Knee deformity [Not Recovered/Not Resolved]
  - Cervical spinal stenosis [Unknown]
  - Thecal sac compression [Not Recovered/Not Resolved]
  - Kyphosis [Unknown]
  - Limb asymmetry [Unknown]
  - Atlantoaxial instability [Unknown]
  - Epiphyseal disorder [Unknown]
  - Spinal disorder [Not Recovered/Not Resolved]
  - Aortic valve disease [Unknown]
  - Atelectasis [Unknown]
  - Pleural effusion [Recovering/Resolving]
